FAERS Safety Report 11316820 (Version 2)
Quarter: 2015Q3

REPORT INFORMATION
  Report Type: Spontaneous
  Country: DE (occurrence: None)
  Receive Date: 20150724
  Receipt Date: 20150805
  Transmission Date: 20151125
  Serious: Yes (Other)
  Sender: FDA-Public Use
  Company Number: ADR-2015-01396

PATIENT
  Sex: Female

DRUGS (18)
  1. SIRDALUD (TIZANIDINE HYDROCHLORIDE) [Concomitant]
  2. PLETAL [Concomitant]
     Active Substance: CILOSTAZOL
  3. THEOPHYLLINE [Concomitant]
     Active Substance: THEOPHYLLINE ANHYDROUS
  4. BACLOFEN. [Suspect]
     Active Substance: BACLOFEN
     Dosage: 25 OT
     Dates: start: 20100101
  5. AFOLINIUM (THEOPHYLLINE) [Concomitant]
  6. METFORMIN [Concomitant]
     Active Substance: METFORMIN HYDROCHLORIDE
  7. VALSARTAN  (VALSARTAN) [Concomitant]
     Active Substance: VALSARTAN
  8. MACROGOL (MACROGOL) [Concomitant]
  9. SPIRONOLACTONE (SPIRONOLACTONE) [Concomitant]
     Active Substance: SPIRONOLACTONE
  10. PANTOZOL [Concomitant]
     Active Substance: PANTOPRAZOLE SODIUM
  11. VIANI (FLUTICASONE PROPIONATE, SALMETEROL XINAFOATE) [Concomitant]
  12. SERTRALINE [Concomitant]
     Active Substance: SERTRALINE HYDROCHLORIDE
  13. BEROTEC (FENOTEROL HYDROBROMIDE) [Concomitant]
  14. ESOMEPRAZOLE (ESOMEPRAZOLE) [Concomitant]
     Active Substance: ESOMEPRAZOLE
  15. SATIVEX [Concomitant]
     Active Substance: NABIXIMOLS
  16. FAMPYRA (FAMPRIDINE) [Concomitant]
     Active Substance: DALFAMPRIDINE
  17. ESCITALOPRAM [Concomitant]
     Active Substance: ESCITALOPRAM OXALATE
  18. GILENYA [Suspect]
     Active Substance: FINGOLIMOD HYDROCHLORIDE
     Indication: MULTIPLE SCLEROSIS
     Dates: start: 20110709, end: 20150602

REACTIONS (6)
  - Accidental overdose [None]
  - Cardiovascular disorder [None]
  - Urinary tract infection [None]
  - Paraparesis [None]
  - Lymphopenia [None]
  - Drug prescribing error [None]

NARRATIVE: CASE EVENT DATE: 20150226
